FAERS Safety Report 6719552-1 (Version None)
Quarter: 2010Q2

REPORT INFORMATION
  Report Type: 
  Country: None (occurrence: None)
  Receive Date: 20100507
  Receipt Date: 20100429
  Transmission Date: 20101027
  Serious: Yes (Congenital Anomaly)
  Sender: FDA-Public Use
  Company Number: 011189

PATIENT

DRUGS (1)
  1. KEPPRA [Suspect]
     Dosage: (3000 MG TRANSPLACENTAL)
     Route: 064

REACTIONS (5)
  - CLEFT LIP [None]
  - CONGENITAL JAW MALFORMATION [None]
  - CONGENITAL SPINAL CORD ANOMALY [None]
  - MATERNAL DRUGS AFFECTING FOETUS [None]
  - SPINA BIFIDA [None]
